FAERS Safety Report 7770455-3 (Version None)
Quarter: 2011Q3

REPORT INFORMATION
  Report Type: 
  Country: None (occurrence: None)
  Receive Date: 20110922
  Receipt Date: 20100803
  Transmission Date: 20111222
  Serious: No
  Sender: FDA-Public Use
  Company Number: US-ASTRAZENECA-2007UW27709

PATIENT
  Age: 525 Month
  Sex: Male
  Weight: 86.2 kg

DRUGS (9)
  1. LORAZEPAM [Concomitant]
     Route: 048
     Dates: start: 20030610
  2. SEROQUEL [Suspect]
     Indication: ANXIETY
     Route: 048
     Dates: start: 20030606
  3. SERTRALINE HYDROCHLORIDE [Concomitant]
     Route: 048
     Dates: start: 20030607
  4. SEROQUEL [Suspect]
     Indication: DEPRESSION
     Route: 048
     Dates: start: 20030606
  5. SEROQUEL [Suspect]
     Route: 048
     Dates: start: 20030615, end: 20030715
  6. SEROQUEL [Suspect]
     Route: 048
     Dates: start: 20030615, end: 20030715
  7. GABAPENTIN [Concomitant]
     Route: 048
     Dates: start: 20030610
  8. SEROQUEL [Suspect]
     Indication: SLEEP DISORDER
     Route: 048
     Dates: start: 20030606
  9. SEROQUEL [Suspect]
     Route: 048
     Dates: start: 20030615, end: 20030715

REACTIONS (6)
  - DIABETIC COMPLICATION [None]
  - TYPE 2 DIABETES MELLITUS [None]
  - HYPERLIPIDAEMIA [None]
  - DIABETES MELLITUS INADEQUATE CONTROL [None]
  - BLOOD CHOLESTEROL INCREASED [None]
  - DIABETES MELLITUS [None]
